FAERS Safety Report 25346800 (Version 1)
Quarter: 2025Q2

REPORT INFORMATION
  Report Type: Spontaneous
  Country: GB (occurrence: GB)
  Receive Date: 20250522
  Receipt Date: 20250522
  Transmission Date: 20250716
  Serious: Yes (Other)
  Sender: NATCO PHARMA
  Company Number: GB-NATCO-000031

PATIENT
  Age: 69 Year
  Sex: Female

DRUGS (2)
  1. PROPRANOLOL [Concomitant]
     Active Substance: PROPRANOLOL HYDROCHLORIDE
     Indication: Anxiety
     Route: 065
  2. PACLITAXEL [Suspect]
     Active Substance: PACLITAXEL
     Indication: Breast cancer
     Dosage: INTRAVENOUS WEEKLY PACLITAXEL 80 MG/M SQUARE
     Route: 042
     Dates: start: 202006

REACTIONS (1)
  - Cystoid macular oedema [Recovered/Resolved]
